FAERS Safety Report 8816494 (Version 1)
Quarter: 2012Q4

REPORT INFORMATION
  Report Type: Spontaneous
  Country: US (occurrence: None)
  Receive Date: 20120927
  Receipt Date: 20120927
  Transmission Date: 20130627
  Serious: No
  Sender: FDA-Public Use
  Company Number: 201209000117

PATIENT
  Age: 5 Year
  Sex: Female

DRUGS (6)
  1. INOMAX [Suspect]
     Indication: PULMONARY ARTERIAL HYPERTENSION
  2. BUSULFAN (BUSULFAN) [Concomitant]
  3. FLUDARABINE (FLUDARABINE) [Concomitant]
  4. CYCLOPHOSPHAMIDE (CYCLOPHOSPHAMIDE) [Concomitant]
  5. CYCLOSPORINE (CICLOSPORIN) [Concomitant]
  6. ATG /00575401/ (ANTITHYMOCYTE IMMUNOGLOBULIN) [Concomitant]

REACTIONS (3)
  - Drug ineffective [None]
  - Hypoxia [None]
  - Disease progression [None]
